FAERS Safety Report 6575817-8 (Version None)
Quarter: 2010Q1

REPORT INFORMATION
  Report Type: 
  Country: None (occurrence: None)
  Receive Date: 20100208
  Receipt Date: 20100208
  Transmission Date: 20100710
  Serious: Yes (Other)
  Sender: FDA-Public Use
  Company Number: None

PATIENT
  Age: 30 Year
  Sex: Female
  Weight: 72.5755 kg

DRUGS (1)
  1. CEPHALEXIN [Suspect]
     Indication: CYSTITIS
     Dosage: ONE CAPSULE FOUR TIMES A DAY PO
     Route: 048
     Dates: start: 20100128, end: 20100204

REACTIONS (3)
  - ABDOMINAL PAIN UPPER [None]
  - DECREASED APPETITE [None]
  - DIARRHOEA [None]
